FAERS Safety Report 17425181 (Version 2)
Quarter: 2020Q1

REPORT INFORMATION
  Report Type: Spontaneous
  Country: FR (occurrence: FR)
  Receive Date: 20200218
  Receipt Date: 20200313
  Transmission Date: 20200409
  Serious: Yes (Hospitalization)
  Sender: FDA-Public Use
  Company Number: FR-ACCORD-172741

PATIENT
  Age: 64 Year
  Sex: Female
  Weight: 59 kg

DRUGS (12)
  1. HYDROCHLOROTHIAZIDE. [Suspect]
     Active Substance: HYDROCHLOROTHIAZIDE
     Indication: HYPERTENSION
     Route: 048
     Dates: start: 20191203, end: 20191211
  2. CABOMETYX [Suspect]
     Active Substance: CABOZANTINIB S-MALATE
     Indication: RENAL CANCER
     Dosage: 40 MG 5 DAYS OUT OF 7
     Route: 048
     Dates: start: 20191127, end: 20191211
  3. CANDESARTAN. [Suspect]
     Active Substance: CANDESARTAN
     Indication: HYPERTENSION
     Route: 048
     Dates: start: 20191203, end: 20191211
  4. AMLOR [Concomitant]
     Active Substance: AMLODIPINE BESYLATE
  5. FENOFIBRATE. [Concomitant]
     Active Substance: FENOFIBRATE
  6. BACTRIM [Suspect]
     Active Substance: SULFAMETHOXAZOLE\TRIMETHOPRIM
     Indication: ANTIBIOTIC THERAPY
     Dates: end: 20191211
  7. SKENAN [Concomitant]
     Active Substance: MORPHINE SULFATE
  8. ACUPAN [Concomitant]
     Active Substance: NEFOPAM HYDROCHLORIDE
  9. PARACETAMOL [Concomitant]
     Active Substance: ACETAMINOPHEN
  10. VERSATIS [Concomitant]
     Active Substance: LIDOCAINE
  11. ACTISKENAN [Concomitant]
     Active Substance: MORPHINE SULFATE
  12. LEVOTHYROX [Concomitant]
     Active Substance: LEVOTHYROXINE

REACTIONS (3)
  - Hyperkalaemia [Recovering/Resolving]
  - Acute kidney injury [Recovered/Resolved]
  - Hyponatraemia [Recovering/Resolving]

NARRATIVE: CASE EVENT DATE: 20191211
